FAERS Safety Report 24754737 (Version 1)
Quarter: 2024Q4

REPORT INFORMATION
  Report Type: Spontaneous
  Country: CN (occurrence: CN)
  Receive Date: 20241219
  Receipt Date: 20241219
  Transmission Date: 20250115
  Serious: Yes (Hospitalization, Other)
  Sender: DR REDDYS
  Company Number: CN-RDY-LIT/CHN/24/0018688

PATIENT

DRUGS (26)
  1. OLANZAPINE [Suspect]
     Active Substance: OLANZAPINE
     Indication: New daily persistent headache
  2. PREGABALIN [Suspect]
     Active Substance: PREGABALIN
     Indication: New daily persistent headache
  3. QUETIAPINE [Suspect]
     Active Substance: QUETIAPINE
     Indication: New daily persistent headache
     Dosage: 300?MG/NIGHT
  4. botulinum-toxin-A [Concomitant]
     Indication: New daily persistent headache
     Route: 030
  5. EPERISONE [Concomitant]
     Active Substance: EPERISONE
     Indication: New daily persistent headache
     Route: 048
  6. LOXOPROFEN [Concomitant]
     Active Substance: LOXOPROFEN
     Indication: New daily persistent headache
     Route: 048
  7. DULOXETINE [Concomitant]
     Active Substance: DULOXETINE
     Indication: New daily persistent headache
  8. AMITRIPTYLINE [Concomitant]
     Active Substance: AMITRIPTYLINE
     Indication: New daily persistent headache
  9. AMITRIPTYLINE [Concomitant]
     Active Substance: AMITRIPTYLINE
     Dosage: 75?MG/NIGHT
  10. ARIPIPRAZOLE [Concomitant]
     Active Substance: ARIPIPRAZOLE
     Indication: New daily persistent headache
     Dosage: 5?MG/D TABLETS
     Route: 048
  11. VENLAFAXINE [Concomitant]
     Active Substance: VENLAFAXINE HYDROCHLORIDE
     Indication: New daily persistent headache
     Dosage: SUSTAINED-RELEASE CAPSULES 225 MG/D
  12. VALPROATE SODIUM [Concomitant]
     Active Substance: VALPROATE SODIUM
     Indication: New daily persistent headache
     Dosage: 500 MG SUSTAINED-RELEASE TABLETS TWICE DAILY
  13. GABAPENTIN [Concomitant]
     Active Substance: GABAPENTIN
     Indication: New daily persistent headache
     Dosage: 0.9 G THRICE DAILY
  14. TRAZODONE [Concomitant]
     Active Substance: TRAZODONE HYDROCHLORIDE
     Indication: New daily persistent headache
  15. CLONAZEPAM [Concomitant]
     Active Substance: CLONAZEPAM
     Indication: New daily persistent headache
     Dosage: 1?MG/NIGHT
  16. CLONAZEPAM [Concomitant]
     Active Substance: CLONAZEPAM
  17. AGOMELATINE [Concomitant]
     Active Substance: AGOMELATINE
     Indication: New daily persistent headache
     Dosage: 50 MG BEFORE BEDTIME TABLETS
  18. TOPIRAMATE [Concomitant]
     Active Substance: TOPIRAMATE
     Indication: New daily persistent headache
     Dosage: 200 MG/D
  19. TOPIRAMATE [Concomitant]
     Active Substance: TOPIRAMATE
     Dosage: 50 MG CAPSULES TWICE DAILY
  20. CALCIUM CARBONATE [Concomitant]
     Active Substance: CALCIUM CARBONATE
     Indication: New daily persistent headache
     Route: 048
  21. CHOLECALCIFEROL [Concomitant]
     Active Substance: CHOLECALCIFEROL
     Indication: New daily persistent headache
     Dosage: 600?MG/MORNING TABLETS
     Route: 048
  22. VITAMIN D [Concomitant]
     Active Substance: VITAMIN D NOS
     Indication: New daily persistent headache
     Dosage: 20.25?MG/MORNING
     Route: 048
  23. VENLAFAXINE [Concomitant]
     Active Substance: VENLAFAXINE HYDROCHLORIDE
     Indication: New daily persistent headache
     Dosage: 150?MG/NIGHT
  24. TRAZODONE [Concomitant]
     Active Substance: TRAZODONE HYDROCHLORIDE
     Indication: New daily persistent headache
     Dosage: 150?MG/NIGHT
  25. PAPAVERINE [Concomitant]
     Active Substance: PAPAVERINE
     Indication: New daily persistent headache
     Dosage: 60?MG/D
  26. LIDOCAINE [Concomitant]
     Active Substance: LIDOCAINE
     Indication: New daily persistent headache
     Dosage: INJECTED LIDOCAINE AT 13 TENDERNESS POINTS ON THE FOREHEAD

REACTIONS (1)
  - Drug ineffective for unapproved indication [Unknown]
